FAERS Safety Report 9117592 (Version 1)
Quarter: 2013Q1

REPORT INFORMATION
  Report Type: Spontaneous
  Country: US (occurrence: US)
  Receive Date: 20130208
  Receipt Date: 20130208
  Transmission Date: 20140127
  Serious: No
  Sender: FDA-Public Use
  Company Number: US-PFIZER INC-2013053289

PATIENT
  Sex: Female

DRUGS (2)
  1. ACCUPRIL [Suspect]
     Indication: BLOOD PRESSURE ABNORMAL
     Dosage: UNK
  2. QUINAPRIL HCL [Suspect]
     Dosage: UNK

REACTIONS (5)
  - Drug ineffective [Unknown]
  - Chest pain [Unknown]
  - Nausea [Unknown]
  - Pain in extremity [Unknown]
  - Hypersensitivity [Unknown]
